FAERS Safety Report 7061695-X (Version None)
Quarter: 2010Q4

REPORT INFORMATION
  Report Type: 
  Country: None (occurrence: None)
  Receive Date: 20101026
  Receipt Date: 20101015
  Transmission Date: 20110411
  Serious: Yes (Death)
  Sender: FDA-Public Use
  Company Number: DE-ROCHE-652645

PATIENT
  Sex: Female
  Weight: 62 kg

DRUGS (6)
  1. TRASTUZUMAB [Suspect]
     Route: 042
     Dates: start: 20090108, end: 20090611
  2. CAPECITABINE [Suspect]
     Dosage: OTHER INDICATION: BRAIN/LIVER METASTASES.
     Route: 048
     Dates: start: 20100106, end: 20100228
  3. TYKERB [Concomitant]
     Route: 048
     Dates: start: 20100106
  4. CELLONDAN [Concomitant]
     Dosage: DRUG: CELLONDAN LINGUAL
     Route: 048
     Dates: start: 20100106
  5. OMEP [Concomitant]
     Route: 048
     Dates: start: 20100106
  6. MCP [Concomitant]
     Dosage: DRUG: MCP TROPFEN
     Route: 048
     Dates: start: 20100106

REACTIONS (1)
  - MALIGNANT NEOPLASM PROGRESSION [None]
